FAERS Safety Report 9362777 (Version 1)
Quarter: 2013Q2

REPORT INFORMATION
  Report Type: Spontaneous
  Country: BR (occurrence: BR)
  Receive Date: 20130624
  Receipt Date: 20130624
  Transmission Date: 20140414
  Serious: Yes (Other)
  Sender: FDA-Public Use
  Company Number: BR-PFIZER INC-2013182293

PATIENT
  Age: 86 Year
  Sex: Male

DRUGS (2)
  1. XALATAN [Suspect]
     Indication: CATARACT
     Dosage: 3 UG (ONE DROP IN EACH EYE), 1X/DAY
     Route: 047
     Dates: start: 2012, end: 201306
  2. XALATAN [Suspect]
     Indication: GLAUCOMA
     Dosage: ONE DROP 8X/DAY; WHICH DECREASES WEEKLY
     Route: 047
     Dates: start: 2013

REACTIONS (5)
  - Glaucoma [Unknown]
  - Cataract [Unknown]
  - Blindness [Unknown]
  - Medication error [Not Recovered/Not Resolved]
  - Off label use [Not Recovered/Not Resolved]
